FAERS Safety Report 10164690 (Version 1)
Quarter: 2014Q2

REPORT INFORMATION
  Report Type: Spontaneous
  Country: US (occurrence: US)
  Receive Date: 20140510
  Receipt Date: 20140510
  Transmission Date: 20141212
  Serious: No
  Sender: FDA-Public Use
  Company Number: US-BRISTOL-MYERS SQUIBB COMPANY-20416889

PATIENT
  Age: 84 Year
  Sex: Male
  Weight: 131.52 kg

DRUGS (3)
  1. BYETTA PEN DISPOSABLE [Suspect]
     Indication: TYPE 2 DIABETES MELLITUS
     Route: 058
  2. LEVEMIR [Suspect]
  3. HUMALOG [Suspect]
     Dosage: 1DF:25UNITS BEFORE BREAKFAST, 15UNITS BEFORE LUNCH AND 25UNITS BEFORE DINNER
     Route: 058

REACTIONS (2)
  - Blood glucose increased [None]
  - Product quality issue [None]
